FAERS Safety Report 5705484-4 (Version None)
Quarter: 2008Q2

REPORT INFORMATION
  Report Type: 
  Country: None (occurrence: None)
  Receive Date: 20080411
  Receipt Date: 20080402
  Transmission Date: 20081010
  Serious: Yes (Hospitalization)
  Sender: FDA-Public Use
  Company Number: S08-USA-00477-01

PATIENT
  Age: 16 Year
  Sex: Female

DRUGS (8)
  1. LEXAPRO [Suspect]
     Indication: DEPRESSION
     Dosage: 30 MG QD PO
     Route: 048
     Dates: start: 20070728, end: 20071005
  2. LEXAPRO [Suspect]
     Indication: DEPRESSION
     Dosage: 40 MG QD PO
     Route: 048
     Dates: start: 20071006, end: 20071210
  3. LEXAPRO [Suspect]
     Indication: DEPRESSION
     Dosage: 20 MG QD PO
     Route: 048
     Dates: start: 20071211
  4. LEXAPRO [Suspect]
     Indication: DEPRESSION
     Dosage: 5 MG QD PO
     Route: 048
     Dates: start: 20060428, end: 20060609
  5. LEXAPRO [Suspect]
     Indication: DEPRESSION
     Dosage: 10 MG QD PO
     Route: 048
     Dates: start: 20060610, end: 20070603
  6. LEXAPRO [Suspect]
     Indication: DEPRESSION
     Dosage: 20 MG QD PO
     Route: 048
     Dates: start: 20070604, end: 20070727
  7. ADDERALL XR (AMPHETAMINE EXTENDED RELEASE) [Concomitant]
  8. BIRTH CONTROL (NOS) [Concomitant]

REACTIONS (8)
  - AGGRESSION [None]
  - AGITATION [None]
  - BIPOLAR DISORDER [None]
  - IRRITABILITY [None]
  - OVERDOSE [None]
  - PERSONALITY DISORDER [None]
  - SOCIAL AVOIDANT BEHAVIOUR [None]
  - THINKING ABNORMAL [None]
